FAERS Safety Report 6011686-2 (Version None)
Quarter: 2008Q4

REPORT INFORMATION
  Report Type: 
  Country: None (occurrence: None)
  Receive Date: 20081218
  Receipt Date: 19860801
  Transmission Date: 20090506
  Serious: Yes (Death)
  Sender: FDA-Public Use
  Company Number: AU-ROCHE-860150111001

PATIENT
  Age: 81 Year
  Sex: Male

DRUGS (1)
  1. INTERFERON ALFA-2A [Suspect]
     Indication: MYCOSIS FUNGOIDES
     Route: 030
     Dates: start: 19860304, end: 19860509

REACTIONS (1)
  - DISEASE PROGRESSION [None]
